FAERS Safety Report 17450011 (Version 1)
Quarter: 2020Q3

REPORT INFORMATION
  Report Type: Spontaneous
  Country: US (occurrence: US)
  Receive Date: 20200212
  Receipt Date: 20200212
  Transmission Date: 20201104
  Serious: No
  Sender: FDA-Public Use
  Company Number: None

PATIENT
  Age: 46 Year
  Sex: Male
  Weight: 69.75 kg

DRUGS (4)
  1. IPAMORELIN. [Suspect]
     Active Substance: IPAMORELIN
     Indication: ERECTILE DYSFUNCTION
     Dosage: ?          OTHER ROUTE:BELLY SUBCUTANEOUS INJECTION?
  2. SERMORELIN [Suspect]
     Active Substance: SERMORELIN
  3. TESTOSTERONE CIPIONATE [Concomitant]
     Active Substance: TESTOSTERONE
  4. VITAMIN D [Concomitant]
     Active Substance: VITAMIN D NOS

REACTIONS (1)
  - Arthralgia [None]

NARRATIVE: CASE EVENT DATE: 20200115
